FAERS Safety Report 6147926-9 (Version None)
Quarter: 2009Q2

REPORT INFORMATION
  Report Type: 
  Country: None (occurrence: None)
  Receive Date: 20090408
  Receipt Date: 20090327
  Transmission Date: 20091009
  Serious: Yes (Hospitalization)
  Sender: FDA-Public Use
  Company Number: JP-PFIZER INC-2009190765

PATIENT

DRUGS (1)
  1. PREGABALIN [Suspect]
     Dosage: UNK
     Route: 048

REACTIONS (1)
  - SLEEP APNOEA SYNDROME [None]
